FAERS Safety Report 25721494 (Version 1)
Quarter: 2025Q3

REPORT INFORMATION
  Report Type: Spontaneous
  Country: CN (occurrence: CN)
  Receive Date: 20250825
  Receipt Date: 20250825
  Transmission Date: 20251021
  Serious: Yes (Other)
  Sender: BAXTER
  Company Number: None

PATIENT
  Age: 47 Year
  Sex: Female
  Weight: 57.3 kg

DRUGS (11)
  1. CYCLOPHOSPHAMIDE [Suspect]
     Active Substance: CYCLOPHOSPHAMIDE
     Indication: Breast cancer female
     Dosage: 0.9 G, QD
     Route: 041
     Dates: start: 20250807, end: 20250807
  2. SODIUM CHLORIDE [Suspect]
     Active Substance: SODIUM CHLORIDE
     Route: 042
     Dates: start: 20250807
  3. SODIUM CHLORIDE [Suspect]
     Active Substance: SODIUM CHLORIDE
     Route: 042
     Dates: start: 20250807
  4. EPIRUBICIN [Suspect]
     Active Substance: EPIRUBICIN
     Indication: Breast cancer female
     Dosage: 145 MG, QD
     Route: 041
     Dates: start: 20250807, end: 20250807
  5. SODIUM CHLORIDE [Suspect]
     Active Substance: SODIUM CHLORIDE
     Indication: Breast cancer female
     Dosage: 100 ML, QD (WITH CYCLOPHOSPHAMIDE)
     Route: 041
     Dates: start: 20250807, end: 20250807
  6. SODIUM CHLORIDE [Suspect]
     Active Substance: SODIUM CHLORIDE
     Dosage: 100 ML, QD (WITH EPIRUBICIN HYDROCHLORIDE))
     Route: 041
     Dates: start: 20250807, end: 20250807
  7. DEXAMETHASONE SODIUM PHOSPHATE [Concomitant]
     Active Substance: DEXAMETHASONE SODIUM PHOSPHATE
     Indication: Prophylaxis of nausea and vomiting
     Route: 042
     Dates: start: 20250807
  8. TROPISETRON HYDROCHLORIDE [Concomitant]
     Active Substance: TROPISETRON HYDROCHLORIDE
     Indication: Prophylaxis of nausea and vomiting
     Route: 042
     Dates: start: 20250807
  9. TROPISETRON HYDROCHLORIDE [Concomitant]
     Active Substance: TROPISETRON HYDROCHLORIDE
     Route: 042
     Dates: start: 20250807
  10. OMEPRAZOLE SODIUM [Concomitant]
     Active Substance: OMEPRAZOLE SODIUM
     Dosage: 40 MG, QD (AFTER CHEMOTHERAPY)
     Route: 041
     Dates: start: 20250807, end: 20250810
  11. SODIUM CHLORIDE [Concomitant]
     Active Substance: SODIUM CHLORIDE
     Dosage: 100 ML, QD (WITH OMEPRAZOLE SODIUM)
     Route: 041
     Dates: start: 20250807, end: 20250810

REACTIONS (4)
  - Poor quality sleep [Recovering/Resolving]
  - Palpitations [Recovering/Resolving]
  - Decreased appetite [Recovering/Resolving]
  - Vomiting [Recovering/Resolving]

NARRATIVE: CASE EVENT DATE: 20250807
